FAERS Safety Report 6781189-6 (Version None)
Quarter: 2010Q2

REPORT INFORMATION
  Report Type: 
  Country: None (occurrence: None)
  Receive Date: 20100621
  Receipt Date: 20100611
  Transmission Date: 20101027
  Serious: Yes (Other)
  Sender: FDA-Public Use
  Company Number: US-PFIZER INC-2010074024

PATIENT
  Sex: Female
  Weight: 77.098 kg

DRUGS (3)
  1. GEODON [Suspect]
     Indication: BIPOLAR DISORDER
     Dosage: 80 MG, 2X/DAY
     Route: 048
     Dates: start: 20060101
  2. LAMICTAL [Concomitant]
     Dosage: UNK
  3. CYMBALTA [Concomitant]
     Indication: BIPOLAR DISORDER
     Dosage: UNK

REACTIONS (2)
  - NERVE INJURY [None]
  - NEURALGIA [None]
